FAERS Safety Report 17858932 (Version 1)
Quarter: 2020Q2

REPORT INFORMATION
  Report Type: Spontaneous
  Country: JP (occurrence: JP)
  Receive Date: 20200604
  Receipt Date: 20200604
  Transmission Date: 20200714
  Serious: Yes (Other)
  Sender: FDA-Public Use
  Company Number: JP-PFIZER INC-2020213860

PATIENT

DRUGS (1)
  1. FARMORUBICIN [Suspect]
     Active Substance: EPIRUBICIN HYDROCHLORIDE
     Dosage: UNK

REACTIONS (4)
  - Troponin increased [Unknown]
  - Arrhythmia [Unknown]
  - Cardiac failure [Unknown]
  - Chest discomfort [Unknown]
